FAERS Safety Report 12579594 (Version 2)
Quarter: 2016Q3

REPORT INFORMATION
  Report Type: Spontaneous
  Country: FR (occurrence: FR)
  Receive Date: 20160721
  Receipt Date: 20160920
  Transmission Date: 20161109
  Serious: Yes (Hospitalization)
  Sender: FDA-Public Use
  Company Number: FR-PFIZER INC-2016349252

PATIENT
  Age: 16 Year
  Sex: Male

DRUGS (6)
  1. SOLIRIS [Concomitant]
     Active Substance: ECULIZUMAB
     Indication: PAROXYSMAL NOCTURNAL HAEMOGLOBINURIA
     Dosage: 900 MG, ONCE EVERY 2 WEEKS
     Route: 042
     Dates: start: 20160215, end: 20160620
  2. TAZOCILLINE [Suspect]
     Active Substance: PIPERACILLIN SODIUM\TAZOBACTAM SODIUM
     Indication: BACTERIAL SEPSIS
     Dosage: 4 G, 4X/DAY
     Route: 042
     Dates: start: 20160618, end: 20160624
  3. ATARAX [Suspect]
     Active Substance: HYDROXYZINE\HYDROXYZINE HYDROCHLORIDE
     Indication: SLEEP DISORDER
     Dosage: 25 MG, 1X/DAY
     Route: 048
     Dates: start: 20160613, end: 20160627
  4. ORACILLIN /00001802/ [Suspect]
     Active Substance: PENICILLIN V POTASSIUM
     Indication: PROPHYLAXIS
     Dosage: 1 MILLION IU, 2X/DAY
     Route: 048
     Dates: start: 201602, end: 20160628
  5. BACTRIM [Suspect]
     Active Substance: SULFAMETHOXAZOLE\TRIMETHOPRIM
     Indication: PROPHYLAXIS
     Dosage: 800 MG, 3X/WEEK
     Route: 048
     Dates: start: 20160613, end: 20160629
  6. TAZOCILLINE [Suspect]
     Active Substance: PIPERACILLIN SODIUM\TAZOBACTAM SODIUM
     Dosage: UNK
     Dates: start: 20160627, end: 20160629

REACTIONS (5)
  - Rash erythematous [Recovered/Resolved]
  - Photosensitivity reaction [Recovered/Resolved]
  - Hypotension [Recovered/Resolved]
  - Pyrexia [Recovered/Resolved]
  - Inflammation [Recovered/Resolved]

NARRATIVE: CASE EVENT DATE: 20160627
